FAERS Safety Report 8426098-1 (Version None)
Quarter: 2012Q2

REPORT INFORMATION
  Report Type: 
  Country: None (occurrence: None)
  Receive Date: 20120611
  Receipt Date: 20120529
  Transmission Date: 20120825
  Serious: Yes (Hospitalization, Other)
  Sender: FDA-Public Use
  Company Number: JP-ELI_LILLY_AND_COMPANY-JP201205005367

PATIENT
  Age: 68 Year
  Sex: Female

DRUGS (1)
  1. ZYPREXA [Suspect]
     Indication: SCHIZOPHRENIA
     Dosage: 5 MG, QD
     Route: 048
     Dates: start: 20100201, end: 20120518

REACTIONS (4)
  - GLYCOSYLATED HAEMOGLOBIN INCREASED [None]
  - LARGE INTESTINE CARCINOMA [None]
  - HYPERGLYCAEMIA [None]
  - BREAST CANCER [None]
